FAERS Safety Report 6749660-0 (Version None)
Quarter: 2010Q2

REPORT INFORMATION
  Report Type: 
  Country: None (occurrence: None)
  Receive Date: 20100601
  Receipt Date: 20100525
  Transmission Date: 20101027
  Serious: Yes (Hospitalization)
  Sender: FDA-Public Use
  Company Number: B0657118A

PATIENT
  Sex: Female

DRUGS (10)
  1. AUGMENTIN '125' [Suspect]
     Indication: ERYSIPELAS
     Dosage: 1G THREE TIMES PER DAY
     Route: 048
     Dates: start: 20081208, end: 20081219
  2. PREVISCAN [Suspect]
     Indication: ATRIAL FIBRILLATION
     Route: 048
     Dates: end: 20081211
  3. TRIATEC [Concomitant]
     Dosage: 1.25MG PER DAY
     Route: 048
  4. MOPRAL [Concomitant]
     Indication: ULCER
     Dosage: 20MG PER DAY
     Route: 048
  5. ZOLPIDEM [Concomitant]
     Indication: INSOMNIA
     Dosage: 5MG AT NIGHT
     Route: 048
  6. CORDARONE [Concomitant]
     Indication: ATRIAL FIBRILLATION
     Dosage: 200MG PER DAY
     Route: 048
  7. NULYTELY [Concomitant]
     Indication: CONSTIPATION
     Dosage: 2UNIT PER DAY
     Route: 048
  8. GAVISCON [Concomitant]
     Dosage: 3UNIT PER DAY
     Route: 048
  9. TAHOR [Concomitant]
     Dosage: 10MG PER DAY
     Route: 048
  10. KARDEGIC [Concomitant]
     Dosage: 75MG PER DAY
     Route: 048

REACTIONS (3)
  - INTERNATIONAL NORMALISED RATIO INCREASED [None]
  - PYREXIA [None]
  - RENAL FUNCTION TEST ABNORMAL [None]
